FAERS Safety Report 8072144-7 (Version None)
Quarter: 2012Q1

REPORT INFORMATION
  Report Type: 
  Country: None (occurrence: None)
  Receive Date: 20120126
  Receipt Date: 20120116
  Transmission Date: 20120608
  Serious: Yes (Disabling, Other)
  Sender: FDA-Public Use
  Company Number: CA-ELI_LILLY_AND_COMPANY-CA201107002267

PATIENT
  Sex: Male

DRUGS (14)
  1. ZYPREXA [Suspect]
     Dosage: 7.5 MG, UNK
  2. ZYPREXA [Suspect]
     Dosage: 2.5 MG, BID
  3. ZYPREXA [Suspect]
     Dosage: 5 MG, UNK
  4. IMOVANE [Concomitant]
     Dosage: 15 MG, PRN
     Route: 048
  5. CRESTOR [Concomitant]
     Dosage: 5 MG, UNK
     Route: 048
  6. CRESTOR [Concomitant]
     Dosage: 10 MG, UNK
     Route: 048
  7. ALTACE [Concomitant]
     Dosage: 2.5 MG, BID
     Route: 048
  8. ASPIRIN [Concomitant]
  9. IMOVANE [Concomitant]
     Dosage: 7.5 MG, UNK
     Route: 048
  10. CELEBREX [Concomitant]
     Dosage: 200 MG, UNK
     Route: 048
  11. ZYPREXA [Suspect]
     Indication: DEPRESSION
     Dosage: 2.5 MG, UNK
     Dates: start: 20010201
  12. RABEPRAZOLE SODIUM [Concomitant]
     Dosage: 20 MG, UNK
     Route: 048
  13. ENTROPHEN [Concomitant]
     Dosage: 325 MG, QD
     Route: 048
  14. ALTACE [Concomitant]
     Dosage: 10 MG, UNK

REACTIONS (13)
  - BLOOD TRIGLYCERIDES INCREASED [None]
  - HYPERTENSION [None]
  - HYPERLIPIDAEMIA [None]
  - SOMNOLENCE [None]
  - AGITATION [None]
  - WEIGHT INCREASED [None]
  - DIABETES MELLITUS [None]
  - CEREBROVASCULAR ACCIDENT [None]
  - INSULIN RESISTANCE SYNDROME [None]
  - RED BLOOD CELL COUNT DECREASED [None]
  - INSOMNIA [None]
  - NEUTROPHIL COUNT DECREASED [None]
  - OFF LABEL USE [None]
